FAERS Safety Report 7276675 (Version 4)
Quarter: 2015Q2

REPORT INFORMATION
  Report Type: Spontaneous
  Country: US (occurrence: US)
  Receive Date: 20100212
  Receipt Date: 20150629
  Transmission Date: 20150821
  Serious: Yes (Hospitalization, Disabling)
  Sender: FDA-Public Use
  Company Number: US-BAYER-201013336NA

PATIENT
  Age: 45 Year
  Sex: Female
  Weight: 95.24 kg

DRUGS (23)
  1. DESYREL [Concomitant]
     Active Substance: TRAZODONE HYDROCHLORIDE
     Indication: ANXIETY
     Dates: start: 20091119, end: 201001
  2. EPITOL [Concomitant]
     Active Substance: CARBAMAZEPINE
     Dates: start: 200912
  3. IMODIUM [Concomitant]
     Active Substance: LOPERAMIDE HYDROCHLORIDE
     Indication: DIARRHOEA
  4. ATIVAN [Concomitant]
     Active Substance: LORAZEPAM
     Dosage: 2 MG, UNK
     Dates: start: 20090930
  5. YAZ [Suspect]
     Active Substance: DROSPIRENONE\ETHINYL ESTRADIOL
     Route: 048
     Dates: start: 20091001, end: 20091111
  6. PEPCID [Concomitant]
     Active Substance: FAMOTIDINE
     Indication: ANTACID THERAPY
  7. LITHIUM. [Concomitant]
     Active Substance: LITHIUM
     Indication: BIPOLAR DISORDER
     Dates: start: 200906, end: 20091119
  8. LITHIUM. [Concomitant]
     Active Substance: LITHIUM
     Indication: BIPOLAR DISORDER
  9. BUPROPION [Concomitant]
     Active Substance: BUPROPION
     Dates: start: 200812, end: 200902
  10. DESYREL [Concomitant]
     Active Substance: TRAZODONE HYDROCHLORIDE
     Indication: SLEEP DISORDER
  11. COUMADIN [Concomitant]
     Active Substance: WARFARIN SODIUM
     Indication: CEREBRAL THROMBOSIS
  12. SYNTHROID [Concomitant]
     Active Substance: LEVOTHYROXINE SODIUM
     Indication: THYROID DISORDER
     Dates: start: 20091121
  13. TEGRETOL [Concomitant]
     Active Substance: CARBAMAZEPINE
     Indication: SEIZURE
  14. CELEXA [Concomitant]
     Active Substance: CITALOPRAM HYDROBROMIDE
     Indication: DEPRESSION
     Dates: start: 20091119
  15. ZOCOR [Concomitant]
     Active Substance: SIMVASTATIN
     Indication: BLOOD CHOLESTEROL INCREASED
     Dates: start: 200911
  16. ASPIRIN. [Concomitant]
     Active Substance: ASPIRIN
     Indication: THROMBOSIS PROPHYLAXIS
  17. LEVOTHYROXIN [Concomitant]
     Active Substance: LEVOTHYROXINE
     Dates: start: 200911
  18. TEGRETOL [Concomitant]
     Active Substance: CARBAMAZEPINE
     Indication: SEIZURE
  19. EPITOL [Concomitant]
     Active Substance: CARBAMAZEPINE
     Dates: start: 200905, end: 200908
  20. FAMOTIDINE. [Concomitant]
     Active Substance: FAMOTIDINE
     Dates: start: 200911
  21. LIPITOR [Concomitant]
     Active Substance: ATORVASTATIN CALCIUM
  22. LITHIUM. [Concomitant]
     Active Substance: LITHIUM
     Indication: BIPOLAR DISORDER
     Dates: start: 20091119
  23. PLAVIX [Concomitant]
     Active Substance: CLOPIDOGREL BISULFATE
     Indication: THROMBOSIS PROPHYLAXIS
     Dates: start: 200911

REACTIONS (14)
  - Disturbance in attention [None]
  - Ischaemic stroke [None]
  - Cerebral thrombosis [None]
  - Hemiparesis [None]
  - Hypertonia [None]
  - Cognitive disorder [None]
  - Mental impairment [None]
  - Dysarthria [None]
  - Urinary tract infection [Unknown]
  - Hemianopia homonymous [None]
  - Dysphagia [None]
  - Abasia [None]
  - Injury [None]
  - Memory impairment [None]

NARRATIVE: CASE EVENT DATE: 20091111
